FAERS Safety Report 6429470-4 (Version None)
Quarter: 2009Q4

REPORT INFORMATION
  Report Type: 
  Country: None (occurrence: None)
  Receive Date: 20091105
  Receipt Date: 20090706
  Transmission Date: 20100525
  Serious: No
  Sender: FDA-Public Use
  Company Number: US-ABBOTT-09P-163-0584272-00

PATIENT
  Sex: Female
  Weight: 68.1 kg

DRUGS (2)
  1. KALETRA [Suspect]
     Indication: HIV INFECTION
     Dosage: 200/50 MG
     Dates: start: 20070101
  2. TRUVADA [Concomitant]
     Indication: HIV INFECTION

REACTIONS (1)
  - DRUG DOSE OMISSION [None]
